FAERS Safety Report 8518838-8 (Version None)
Quarter: 2012Q3

REPORT INFORMATION
  Report Type: 
  Country: None (occurrence: None)
  Receive Date: 20120718
  Receipt Date: 20120716
  Transmission Date: 20120928
  Serious: Yes (Hospitalization)
  Sender: FDA-Public Use
  Company Number: PHEH2012US012356

PATIENT
  Sex: Male

DRUGS (5)
  1. FLOMAX [Concomitant]
     Indication: PROSTATE CANCER
  2. EXJADE [Suspect]
     Indication: HAEMOCHROMATOSIS
     Dosage: 500 MG, TID
     Route: 048
     Dates: start: 20120313, end: 20120418
  3. PRILOSEC [Concomitant]
     Indication: GASTROOESOPHAGEAL REFLUX DISEASE
  4. TROSPIUM CHLORIDE [Concomitant]
  5. GLIPIZIDE [Concomitant]
     Indication: DIABETES MELLITUS

REACTIONS (1)
  - PNEUMONIA [None]
